FAERS Safety Report 16029756 (Version 1)
Quarter: 2019Q2

REPORT INFORMATION
  Report Type: Spontaneous
  Country: US (occurrence: US)
  Receive Date: 20190303
  Receipt Date: 20190303
  Transmission Date: 20190711
  Serious: Yes (Life-Threatening, Hospitalization)
  Sender: FDA-Public Use
  Company Number: None

PATIENT
  Age: 55 Year
  Sex: Male
  Weight: 99.4 kg

DRUGS (9)
  1. METHYLPREDNISOLONE. [Concomitant]
     Active Substance: METHYLPREDNISOLONE
     Dates: start: 20190227, end: 20190303
  2. MYCOPHENOLATE [Concomitant]
     Active Substance: MYCOPHENOLIC ACID
     Dates: start: 20190125
  3. ACETAMINOPHEN. [Concomitant]
     Active Substance: ACETAMINOPHEN
     Dates: start: 20190223, end: 20190303
  4. DIPHENHYDRAMINE. [Concomitant]
     Active Substance: DIPHENHYDRAMINE
     Dates: start: 20190227, end: 20190303
  5. FAMOTIDINE. [Concomitant]
     Active Substance: FAMOTIDINE
     Dates: start: 20190303, end: 20190303
  6. TACROLIMUS. [Concomitant]
     Active Substance: TACROLIMUS
     Dates: start: 20190125
  7. PREDNISONE. [Concomitant]
     Active Substance: PREDNISONE
     Dates: start: 20190125
  8. THYMOGLOBULIN [Suspect]
     Active Substance: LAPINE T-LYMPHOCYTE IMMUNE GLOBULIN
     Indication: KIDNEY TRANSPLANT REJECTION
     Route: 042
     Dates: start: 20190227, end: 20190303
  9. RANITIDINE. [Concomitant]
     Active Substance: RANITIDINE
     Dates: start: 20190228, end: 20190302

REACTIONS (6)
  - Abdominal pain [None]
  - Arrhythmia [None]
  - Dyspnoea [None]
  - Infusion related reaction [None]
  - Nausea [None]
  - Heart rate increased [None]

NARRATIVE: CASE EVENT DATE: 20190227
